FAERS Safety Report 7656375-3 (Version None)
Quarter: 2011Q3

REPORT INFORMATION
  Report Type: 
  Country: None (occurrence: None)
  Receive Date: 20110804
  Receipt Date: 20110622
  Transmission Date: 20111222
  Serious: Yes (Other)
  Sender: FDA-Public Use
  Company Number: US-GLAXOSMITHKLINE-A0932734A

PATIENT
  Age: 48 Year
  Sex: Female
  Weight: 67.7 kg

DRUGS (4)
  1. ZOMETA [Concomitant]
     Indication: BREAST CANCER
     Route: 042
     Dates: start: 20090101
  2. TYKERB [Suspect]
     Indication: BREAST CANCER
     Dosage: 750MG PER DAY
     Route: 048
     Dates: start: 20090601
  3. HERCEPTIN [Concomitant]
     Indication: BREAST CANCER
     Route: 042
     Dates: start: 20040501
  4. KEPPRA [Concomitant]
     Indication: CONVULSION
     Dosage: 500MG TWICE PER DAY
     Route: 048
     Dates: start: 20080301

REACTIONS (6)
  - BILIRUBIN CONJUGATED INCREASED [None]
  - BLOOD BILIRUBIN UNCONJUGATED INCREASED [None]
  - ALANINE AMINOTRANSFERASE INCREASED [None]
  - GLOBULIN ABNORMAL [None]
  - ALBUMIN GLOBULIN RATIO INCREASED [None]
  - BLOOD BILIRUBIN INCREASED [None]
